FAERS Safety Report 18903912 (Version 1)
Quarter: 2021Q1

REPORT INFORMATION
  Report Type: Spontaneous
  Country: AU (occurrence: AU)
  Receive Date: 20210217
  Receipt Date: 20210217
  Transmission Date: 20210420
  Serious: Yes (Disabling)
  Sender: FDA-Public Use
  Company Number: None

PATIENT
  Age: 48 Year
  Sex: Female
  Weight: 78 kg

DRUGS (5)
  1. DULOXATINE 120 MG [Concomitant]
  2. PALIPERIDONE INJECTION [Suspect]
     Active Substance: PALIPERIDONE PALMITATE
     Indication: SCHIZOPHRENIA
     Dosage: ?          OTHER FREQUENCY:MONTHLY INJECTIONS;?
     Route: 030
     Dates: start: 20170705
  3. PALIPERIDONE INJECTION [Suspect]
     Active Substance: PALIPERIDONE PALMITATE
     Indication: BIPOLAR DISORDER
     Dosage: ?          OTHER FREQUENCY:MONTHLY INJECTIONS;?
     Route: 030
     Dates: start: 20170705
  4. THYROXINE 75 MG [Concomitant]
  5. PALLIPERIDONE 100 MG [Concomitant]

REACTIONS (9)
  - Chest pain [None]
  - Fall [None]
  - Panic attack [None]
  - Weight increased [None]
  - Vision blurred [None]
  - Nerve injury [None]
  - Dyspnoea [None]
  - Hyperhidrosis [None]
  - Heart rate increased [None]
